FAERS Safety Report 4728821-6 (Version None)
Quarter: 2005Q3

REPORT INFORMATION
  Report Type: 
  Country: None (occurrence: None)
  Receive Date: 20050729
  Receipt Date: 20050224
  Transmission Date: 20060218
  Serious: Yes (Other)
  Sender: FDA-Public Use
  Company Number: 2005AP01367

PATIENT
  Sex: Male

DRUGS (2)
  1. ATACAND HCT [Suspect]
     Indication: ESSENTIAL HYPERTENSION
     Dosage: 16 MG + 12.5 MG
     Route: 048
     Dates: start: 20050201, end: 20050215
  2. COUMADIN [Suspect]
     Indication: ARRHYTHMIA
     Route: 048

REACTIONS (3)
  - MALAISE [None]
  - SENSATION OF BLOOD FLOW [None]
  - TINNITUS [None]
